FAERS Safety Report 19928943 (Version 2)
Quarter: 2022Q2

REPORT INFORMATION
  Report Type: Spontaneous
  Country: US (occurrence: US)
  Receive Date: 20211007
  Receipt Date: 20220505
  Transmission Date: 20220721
  Serious: No
  Sender: FDA-Public Use
  Company Number: US-PFIZER INC-202101238643

PATIENT
  Age: 72 Year
  Sex: Female
  Weight: 86.18 kg

DRUGS (1)
  1. XELJANZ XR [Suspect]
     Active Substance: TOFACITINIB CITRATE
     Indication: Rheumatoid arthritis
     Dosage: 11 MG, 1X/DAY
     Route: 048
     Dates: start: 20191030

REACTIONS (3)
  - Pain [Recovering/Resolving]
  - Swelling [Recovering/Resolving]
  - Sinusitis [Unknown]
